FAERS Safety Report 7796624 (Version 2)
Quarter: 2012Q4

REPORT INFORMATION
  Report Type: 
  Country: US (occurrence: US)
  Receive Date: 20110202
  Receipt Date: 20120828
  Transmission Date: 20130627
  Serious: Yes (Hospitalization, Other)
  Sender: FDA-Public Use
  Company Number: US-PFIZER INC-2011022442

PATIENT
  Age: 55 Year
  Sex: Female
  Weight: 94.33 kg

DRUGS (10)
  1. LYRICA [Suspect]
     Indication: NEURALGIA
     Dosage: 75 mg, 3x/day
     Route: 048
     Dates: start: 2003
  2. LYRICA [Suspect]
     Indication: DIABETIC NEUROPATHY
     Dosage: 100 mg, 3x/day
     Route: 048
     Dates: start: 2005
  3. CYMBALTA [Concomitant]
     Indication: DEPRESSION
     Dosage: UNK
  4. GLIMEPIRIDE [Concomitant]
     Indication: DIABETES MELLITUS
     Dosage: UNK
  5. METOPROLOL [Concomitant]
     Indication: HYPERTENSION
     Dosage: UNK
  6. HYDROCHLOROTHIAZIDE [Concomitant]
     Indication: FLUID RETENTION
     Dosage: UNK
  7. KLOR-CON [Concomitant]
     Indication: MINERAL SUPPLEMENTATION
  8. VITAMIN C [Concomitant]
     Dosage: UNK
  9. METFORMIN [Concomitant]
     Indication: DIABETES MELLITUS
     Dosage: 500 mg 2x/day three in morning and two at night
  10. ACCUPRIL [Concomitant]
     Indication: RENAL DISORDER
     Dosage: 40 mg, daily
     Dates: start: 2010

REACTIONS (4)
  - Muscular weakness [Not Recovered/Not Resolved]
  - Fall [Not Recovered/Not Resolved]
  - Localised infection [Unknown]
  - Pain [Not Recovered/Not Resolved]
